FAERS Safety Report 6666161-9 (Version None)
Quarter: 2010Q2

REPORT INFORMATION
  Report Type: 
  Country: None (occurrence: None)
  Receive Date: 20100402
  Receipt Date: 20100330
  Transmission Date: 20101027
  Serious: Yes (Hospitalization, Disabling, Other)
  Sender: FDA-Public Use
  Company Number: US-MERCK-0705USA00017

PATIENT
  Age: 60 Year
  Sex: Female
  Weight: 100 kg

DRUGS (5)
  1. FOSAMAX [Suspect]
     Indication: OSTEOPOROSIS
     Route: 048
     Dates: start: 20020101, end: 20070617
  2. FOSAMAX [Suspect]
     Route: 048
     Dates: start: 19980901
  3. FOSAMAX [Suspect]
     Route: 048
     Dates: start: 19991216
  4. FOSAMAX [Suspect]
     Route: 048
     Dates: start: 19960101
  5. CLIMARA [Concomitant]
     Indication: MENOPAUSE
     Route: 065
     Dates: start: 19970101, end: 20040101

REACTIONS (31)
  - ABDOMINAL PAIN LOWER [None]
  - ANAEMIA [None]
  - ANAEMIA POSTOPERATIVE [None]
  - BACK PAIN [None]
  - BLOOD POTASSIUM DECREASED [None]
  - BONE DENSITY DECREASED [None]
  - COLON CANCER [None]
  - COUGH [None]
  - DRY EYE [None]
  - ECZEMA [None]
  - EMPHYSEMA [None]
  - FUNGAL INFECTION [None]
  - GASTROINTESTINAL NECROSIS [None]
  - HYPERSENSITIVITY [None]
  - HYPOTHYROIDISM [None]
  - HYPOXIA [None]
  - IMPAIRED HEALING [None]
  - INFECTIVE EXACERBATION OF CHRONIC OBSTRUCTIVE AIRWAYS DISEASE [None]
  - INTERSTITIAL LUNG DISEASE [None]
  - INTESTINAL OBSTRUCTION [None]
  - INTESTINAL POLYP [None]
  - INTESTINAL ULCER [None]
  - NEURALGIA [None]
  - OBLITERATIVE BRONCHIOLITIS [None]
  - ORGANISING PNEUMONIA [None]
  - OSTEOMYELITIS [None]
  - OSTEONECROSIS [None]
  - OSTEOPENIA [None]
  - PROCEDURAL COMPLICATION [None]
  - TEMPOROMANDIBULAR JOINT SYNDROME [None]
  - VAGINAL INFECTION [None]
